FAERS Safety Report 7562754-5 (Version None)
Quarter: 2011Q2

REPORT INFORMATION
  Report Type: 
  Country: None (occurrence: None)
  Receive Date: 20110622
  Receipt Date: 20110617
  Transmission Date: 20111010
  Serious: Yes (Death)
  Sender: FDA-Public Use
  Company Number: SK-PFIZER INC-2011135319

PATIENT
  Sex: Male

DRUGS (2)
  1. VORICONAZOLE [Suspect]
     Dosage: UNK
     Dates: start: 20090801, end: 20090901
  2. ANIDULAFUNGIN [Suspect]
     Dosage: UNK
     Dates: start: 20090901

REACTIONS (4)
  - DEATH [None]
  - CHEST PAIN [None]
  - DYSPNOEA [None]
  - PYREXIA [None]
